FAERS Safety Report 17567707 (Version 1)
Quarter: 2020Q1

REPORT INFORMATION
  Report Type: Spontaneous
  Country: US (occurrence: US)
  Receive Date: 20200320
  Receipt Date: 20200320
  Transmission Date: 20200409
  Serious: No
  Sender: FDA-Public Use
  Company Number: US-BAYER-2020-044166

PATIENT
  Age: 64 Year
  Sex: Male

DRUGS (5)
  1. MIRALAX [Suspect]
     Active Substance: POLYETHYLENE GLYCOL 3350
     Indication: COLONOSCOPY
     Dosage: UNK
     Route: 048
  2. BENA [Concomitant]
     Dosage: UNK
  3. CORICIDIN HBP CHEST CONGESTION AND COUGH [Suspect]
     Active Substance: DEXTROMETHORPHAN HYDROBROMIDE\GUAIFENESIN
     Indication: NASAL CONGESTION
     Dosage: 8 DF, QD
     Route: 048
     Dates: start: 20200309, end: 20200311
  4. FOLIC ACID. [Concomitant]
     Active Substance: FOLIC ACID
     Dosage: UNK
  5. VITAMIN D [VITAMIN D NOS] [Concomitant]
     Active Substance: VITAMIN D NOS
     Dosage: UNK

REACTIONS (4)
  - Abdominal discomfort [Unknown]
  - Abdominal discomfort [Recovered/Resolved]
  - Off label use [Unknown]
  - Product use in unapproved indication [Unknown]
